FAERS Safety Report 24459194 (Version 1)
Quarter: 2024Q4

REPORT INFORMATION
  Report Type: Spontaneous
  Country: US (occurrence: None)
  Receive Date: 20241017
  Receipt Date: 20241017
  Transmission Date: 20250115
  Serious: Yes (Hospitalization)
  Sender: Public
  Company Number: None

PATIENT
  Age: 69 Year
  Sex: Male
  Weight: 86 kg

DRUGS (8)
  1. MIRTAZAPINE [Suspect]
     Active Substance: MIRTAZAPINE
     Indication: Affective disorder
     Dosage: FREQUENCY : AT BEDTIME;?
     Route: 048
  2. MIRTAZAPINE [Suspect]
     Active Substance: MIRTAZAPINE
     Indication: Sleep disorder
  3. TRAMADOL [Suspect]
     Active Substance: TRAMADOL
  4. NORCO [Suspect]
     Active Substance: ACETAMINOPHEN\HYDROCODONE BITARTRATE
  5. TRAZODONE [Suspect]
     Active Substance: TRAZODONE HYDROCHLORIDE
  6. SEROQUEL [Suspect]
     Active Substance: QUETIAPINE FUMARATE
  7. AMITRIPTYLINE [Suspect]
     Active Substance: AMITRIPTYLINE
  8. MELATONIN [Suspect]
     Active Substance: MELATONIN

REACTIONS (7)
  - Insomnia [None]
  - Adverse drug reaction [None]
  - Drug hypersensitivity [None]
  - Mental status changes [None]
  - Gait disturbance [None]
  - Dizziness [None]
  - Dysarthria [None]

NARRATIVE: CASE EVENT DATE: 20240205
